FAERS Safety Report 23176125 (Version 3)
Quarter: 2023Q4

REPORT INFORMATION
  Report Type: Spontaneous
  Country: JP (occurrence: JP)
  Receive Date: 20231113
  Receipt Date: 20231218
  Transmission Date: 20240109
  Serious: Yes (Other)
  Sender: FDA-Public Use
  Company Number: JP-UCBJ-CD202311503UCBPHAPROD

PATIENT
  Age: 47 Year
  Sex: Male

DRUGS (1)
  1. CIMZIA [Suspect]
     Active Substance: CERTOLIZUMAB PEGOL
     Indication: Psoriatic arthropathy
     Dosage: UNK
     Route: 058

REACTIONS (2)
  - Interstitial lung disease [Recovered/Resolved]
  - Coronavirus infection [Recovered/Resolved]
